FAERS Safety Report 13446570 (Version 1)
Quarter: 2017Q2

REPORT INFORMATION
  Report Type: Report from Study
  Country: US (occurrence: US)
  Receive Date: 20170417
  Receipt Date: 20170417
  Transmission Date: 20170830
  Serious: No
  Sender: FDA-Public Use
  Company Number: PHEH2017US010923

PATIENT
  Sex: Female

DRUGS (1)
  1. GLEEVEC [Suspect]
     Active Substance: IMATINIB MESYLATE
     Indication: PRODUCT USED FOR UNKNOWN INDICATION
     Dosage: 400 MG/KG, Q4H
     Route: 065

REACTIONS (5)
  - Vomiting [Unknown]
  - Fatigue [Unknown]
  - Bone pain [Unknown]
  - Nausea [Unknown]
  - Arthralgia [Unknown]
